FAERS Safety Report 8407839 (Version 4)
Quarter: 2014Q2

REPORT INFORMATION
  Report Type: Report from Study
  Country: US (occurrence: US)
  Receive Date: 20120215
  Receipt Date: 20140513
  Transmission Date: 20141212
  Serious: Yes (Other)
  Sender: FDA-Public Use
  Company Number: US-ASTRAZENECA-2011SE49415

PATIENT
  Age: 48 Year
  Sex: Female

DRUGS (3)
  1. NEXIUM [Suspect]
     Indication: HIATUS HERNIA
     Route: 048
  2. NEXIUM [Suspect]
     Indication: HIATUS HERNIA
     Route: 048
     Dates: end: 2014
  3. PROZAC [Concomitant]

REACTIONS (8)
  - Malignant melanoma [Unknown]
  - Neoplasm malignant [Unknown]
  - Systemic lupus erythematosus [Unknown]
  - Dyspepsia [Unknown]
  - Malaise [Unknown]
  - Off label use [Unknown]
  - Intentional product misuse [Unknown]
  - Drug dose omission [Unknown]
